FAERS Safety Report 8499829-2 (Version None)
Quarter: 2012Q3

REPORT INFORMATION
  Report Type: 
  Country: None (occurrence: None)
  Receive Date: 20120710
  Receipt Date: 20120704
  Transmission Date: 20120928
  Serious: No
  Sender: FDA-Public Use
  Company Number: US-PFIZER INC-2012160825

PATIENT
  Sex: Female
  Weight: 52.154 kg

DRUGS (3)
  1. BENADRYL [Suspect]
     Indication: RASH GENERALISED
     Dosage: 50 MG, UNK
     Dates: start: 20120702
  2. ADVIL LIQUI-GELS [Suspect]
     Indication: MEDICAL DEVICE COMPLICATION
     Dosage: 2 X 200 MG CAPSULES, DAILY
     Route: 048
     Dates: start: 20120702, end: 20120702
  3. BENADRYL [Suspect]
     Indication: AURICULAR SWELLING

REACTIONS (3)
  - AURICULAR SWELLING [None]
  - URTICARIA [None]
  - FATIGUE [None]
